FAERS Safety Report 5273077-1 (Version None)
Quarter: 2007Q1

REPORT INFORMATION
  Report Type: 
  Country: None (occurrence: None)
  Receive Date: 20070316
  Receipt Date: 20070228
  Transmission Date: 20070707
  Serious: Yes (Other)
  Sender: FDA-Public Use
  Company Number: DSA_29550_2007

PATIENT
  Age: 38 Year
  Sex: Female

DRUGS (5)
  1. TEMESTA [Suspect]
     Indication: CONDUCT DISORDER
     Dosage: DF
  2. TEMESTA [Suspect]
     Indication: DEPRESSION
     Dosage: DF
  3. FLUCTINE [Suspect]
     Indication: CONDUCT DISORDER
     Dosage: 20 MG BID PO
     Route: 048
  4. FLUCTINE [Suspect]
     Indication: DEPRESSION
     Dosage: 20 MG BID PO
     Route: 048
  5. ZYRTEC [Suspect]
     Indication: URTICARIA
     Dosage: 10 MG Q DAY PO
     Route: 048

REACTIONS (6)
  - DRUG EXPOSURE DURING PREGNANCY [None]
  - FOETAL DISTRESS SYNDROME [None]
  - FOETAL GROWTH RETARDATION [None]
  - OLIGOHYDRAMNIOS [None]
  - PREGNANCY [None]
  - PREMATURE BABY [None]
